FAERS Safety Report 17030481 (Version 2)
Quarter: 2020Q1

REPORT INFORMATION
  Report Type: Report from Study
  Country: US (occurrence: US)
  Receive Date: 20191114
  Receipt Date: 20200110
  Transmission Date: 20200409
  Serious: No
  Sender: FDA-Public Use
  Company Number: US-BEH-2019109341

PATIENT
  Age: 64 Year
  Sex: Female
  Weight: 58.96 kg

DRUGS (4)
  1. HAEGARDA [Suspect]
     Active Substance: HUMAN C1-ESTERASE INHIBITOR
     Indication: HEREDITARY ANGIOEDEMA
     Dosage: 4000 INTERNATIONAL UNIT, BIW  (EVERY 3 TO 4 DAYS)
     Route: 058
     Dates: start: 20180614
  2. HAEGARDA [Suspect]
     Active Substance: HUMAN C1-ESTERASE INHIBITOR
     Indication: PROPHYLAXIS
     Dosage: 8000, 4000 INTERNATIONAL UNIT, BIW
     Route: 058
     Dates: start: 20100805
  3. HAEGARDA [Suspect]
     Active Substance: HUMAN C1-ESTERASE INHIBITOR
     Dosage: 4000 8000 TWICE WEEKLY
     Route: 058
     Dates: start: 20180525
  4. HAEGARDA [Suspect]
     Active Substance: HUMAN C1-ESTERASE INHIBITOR
     Dosage: 2000 INTERNATIONAL UNIT, BIW  (EVERY 3 TO 4 DAYS)
     Route: 065

REACTIONS (4)
  - Anxiety [Unknown]
  - Wrong technique in product usage process [Unknown]
  - Insurance issue [Unknown]
  - No adverse event [Unknown]
